FAERS Safety Report 21396869 (Version 2)
Quarter: 2022Q4

REPORT INFORMATION
  Report Type: Spontaneous
  Country: CO (occurrence: CO)
  Receive Date: 20220930
  Receipt Date: 20221012
  Transmission Date: 20230113
  Serious: Yes (Hospitalization, Other)
  Sender: FDA-Public Use
  Company Number: CO-BAYER-2022P015837

PATIENT
  Age: 24 Year
  Sex: Female
  Weight: 155 kg

DRUGS (1)
  1. MIRENA [Suspect]
     Active Substance: LEVONORGESTREL
     Indication: Contraception
     Dosage: 20?G/DAY
     Route: 015
     Dates: start: 20220908, end: 20220908

REACTIONS (5)
  - Uterine perforation [Recovered/Resolved]
  - Uterine rupture [Recovered/Resolved]
  - Urinary bladder rupture [Recovered/Resolved]
  - Device use issue [None]
  - Complication of device insertion [None]

NARRATIVE: CASE EVENT DATE: 20220908
